FAERS Safety Report 4701766-3 (Version None)
Quarter: 2005Q2

REPORT INFORMATION
  Report Type: 
  Country: None (occurrence: None)
  Receive Date: 20050628
  Receipt Date: 20050616
  Transmission Date: 20051028
  Serious: Yes (Hospitalization)
  Sender: FDA-Public Use
  Company Number: FR-SANOFI-SYNTHELABO-F01200501030

PATIENT
  Sex: Male
  Weight: 74 kg

DRUGS (4)
  1. OXALIPLATIN [Suspect]
     Indication: OESOPHAGEAL CARCINOMA
     Route: 042
     Dates: start: 20050603, end: 20050603
  2. FLUOROURACIL [Suspect]
     Route: 042
     Dates: start: 20050603, end: 20050603
  3. LEUCOVORIN [Suspect]
     Route: 042
     Dates: start: 20050603, end: 20050603
  4. RADIOTHERAPY [Concomitant]
     Indication: OESOPHAGEAL CARCINOMA
     Dosage: TOTAL DOSE OF FRACTION ADMINISTERED BEFORE SAE: NO INFO
     Route: 050
     Dates: start: 20050608, end: 20050608

REACTIONS (7)
  - ANOREXIA [None]
  - C-REACTIVE PROTEIN INCREASED [None]
  - DYSPHAGIA [None]
  - NEUTROPENIA [None]
  - ODYNOPHAGIA [None]
  - THROMBOCYTOPENIA [None]
  - WEIGHT DECREASED [None]
